FAERS Safety Report 16191610 (Version 1)
Quarter: 2019Q2

REPORT INFORMATION
  Report Type: Spontaneous
  Country: FR (occurrence: FR)
  Receive Date: 20190412
  Receipt Date: 20190412
  Transmission Date: 20190711
  Serious: Yes (Hospitalization)
  Sender: FDA-Public Use
  Company Number: FR-TEVA-2019-FR-1035195

PATIENT
  Age: 36 Year
  Sex: Female
  Weight: 73 kg

DRUGS (6)
  1. DESOGESTREL [Concomitant]
     Active Substance: DESOGESTREL
     Indication: CONTRACEPTION
     Route: 048
     Dates: start: 20141020
  2. CYTARABINE. [Suspect]
     Active Substance: CYTARABINE
     Dates: start: 20141020, end: 20141026
  3. IDARUBICIN [Suspect]
     Active Substance: IDARUBICIN
     Dates: start: 20141020, end: 20141024
  4. ZELITREX 500 MG, COMPRIM? ENROB? [Concomitant]
     Active Substance: VALACYCLOVIR HYDROCHLORIDE
     Indication: PROPHYLAXIS
     Route: 048
     Dates: start: 20141102
  5. VESANOID [Suspect]
     Active Substance: TRETINOIN
     Indication: ACUTE MYELOID LEUKAEMIA
     Route: 048
     Dates: start: 20141024, end: 20141202
  6. TRAMADOL (CHLORHYDRATE DE) [Concomitant]
     Active Substance: TRAMADOL HYDROCHLORIDE
     Indication: PAIN
     Route: 048
     Dates: start: 20141111

REACTIONS (5)
  - Pelvic venous thrombosis [Recovered/Resolved]
  - Gait disturbance [Recovered/Resolved]
  - Arthralgia [Recovered/Resolved]
  - Bone marrow necrosis [Recovered/Resolved]
  - Pelvic pain [Recovered/Resolved]

NARRATIVE: CASE EVENT DATE: 20141130
